FAERS Safety Report 18787388 (Version 3)
Quarter: 2025Q2

REPORT INFORMATION
  Report Type: Report from Study
  Country: BR (occurrence: BR)
  Receive Date: 20210126
  Receipt Date: 20250509
  Transmission Date: 20250717
  Serious: Yes (Other)
  Sender: TAKEDA
  Company Number: BR-TAKEDA-2021TUS004356

PATIENT
  Age: 14 Year
  Sex: Male

DRUGS (4)
  1. HEMO-8R [Suspect]
     Active Substance: ANTIHEMOPHILIC FACTOR, HUMAN RECOMBINANT
     Indication: Factor VIII deficiency
     Dosage: 1500 INTERNATIONAL UNIT, Q2WEEKS
     Dates: start: 2014
  2. HEMO-8R [Suspect]
     Active Substance: ANTIHEMOPHILIC FACTOR, HUMAN RECOMBINANT
     Indication: Prophylaxis
     Dosage: 2000 INTERNATIONAL UNIT, 2/WEEK
  3. HEMO-8R [Suspect]
     Active Substance: ANTIHEMOPHILIC FACTOR, HUMAN RECOMBINANT
     Dosage: 2000 INTERNATIONAL UNIT, 3/WEEK
  4. FEIBA NF [Suspect]
     Active Substance: ANTI-INHIBITOR COAGULANT COMPLEX
     Indication: Product used for unknown indication

REACTIONS (4)
  - Drug resistance [Unknown]
  - Haemorrhage [Unknown]
  - Arthropathy [Unknown]
  - Arthralgia [Unknown]

NARRATIVE: CASE EVENT DATE: 20210118
